FAERS Safety Report 9218096 (Version 1)
Quarter: 2013Q2

REPORT INFORMATION
  Report Type: Spontaneous
  Country: GB (occurrence: GB)
  Receive Date: 20130408
  Receipt Date: 20130408
  Transmission Date: 20140414
  Serious: Yes (Life-Threatening)
  Sender: FDA-Public Use
  Company Number: GB-GLAXOSMITHKLINE-B0879795A

PATIENT
  Age: 75 Year
  Sex: Female
  Weight: 65 kg

DRUGS (3)
  1. ACICLOVIR [Suspect]
     Indication: MOUTH ULCERATION
     Dosage: 1000MG PER DAY
     Route: 048
     Dates: start: 20130220, end: 20130303
  2. ACICLOVIR [Suspect]
     Indication: ENCEPHALITIS VIRAL
     Dosage: 30MGK PER DAY
     Route: 042
     Dates: start: 20130304, end: 20130306
  3. ASPIRIN [Concomitant]

REACTIONS (10)
  - Neurotoxicity [Recovered/Resolved]
  - Convulsion [Unknown]
  - Renal impairment [Unknown]
  - Coma scale abnormal [Recovering/Resolving]
  - CSF protein increased [Unknown]
  - Dystonia [Unknown]
  - Blood creatinine increased [Unknown]
  - Confusional state [Unknown]
  - Lymphocytosis [Unknown]
  - Drug level increased [Unknown]
